FAERS Safety Report 10013700 (Version 2)
Quarter: 2014Q1

REPORT INFORMATION
  Report Type: Spontaneous
  Country: DK (occurrence: DK)
  Receive Date: 20140316
  Receipt Date: 20140316
  Transmission Date: 20141002
  Serious: Yes (Disabling)
  Sender: FDA-Public Use
  Company Number: DK-BAYER-201018183GPV

PATIENT
  Age: 34 Year
  Sex: Male
  Weight: 83 kg

DRUGS (9)
  1. GADOLINIUM IN UNSPECIFIED DRUG [Suspect]
     Indication: NUCLEAR MAGNETIC RESONANCE IMAGING ABDOMINAL
     Dosage: AS USED DOSE, ONCE
     Route: 042
     Dates: start: 19980906, end: 19980906
  2. GADOLINIUM IN UNSPECIFIED DRUG [Suspect]
     Indication: NUCLEAR MAGNETIC RESONANCE IMAGING ABDOMINAL
  3. PREDNISOLON [Concomitant]
     Indication: IMMUNOSUPPRESSION
     Route: 048
  4. BURINEX [Concomitant]
     Indication: DIURETIC THERAPY
     Route: 048
  5. CENTYL [Concomitant]
     Indication: DIURETIC THERAPY
     Route: 048
  6. TACROLIMUS [Concomitant]
     Indication: IMMUNOSUPPRESSION
  7. FERRO DURETTER [Concomitant]
     Indication: MINERAL SUPPLEMENTATION
     Route: 048
  8. ACTRAPID [Concomitant]
     Indication: TYPE 1 DIABETES MELLITUS
     Route: 058
  9. INSULATARD [INSULIN HUMAN] [Concomitant]
     Indication: TYPE 1 DIABETES MELLITUS
     Route: 058

REACTIONS (12)
  - Nephrogenic systemic fibrosis [Not Recovered/Not Resolved]
  - Myalgia [Not Recovered/Not Resolved]
  - Discomfort [Not Recovered/Not Resolved]
  - Paraesthesia [Not Recovered/Not Resolved]
  - Arthralgia [Not Recovered/Not Resolved]
  - Restless legs syndrome [Not Recovered/Not Resolved]
  - Eczema [Not Recovered/Not Resolved]
  - Muscular weakness [Not Recovered/Not Resolved]
  - Gait disturbance [Not Recovered/Not Resolved]
  - Dysstasia [Not Recovered/Not Resolved]
  - Joint range of motion decreased [Not Recovered/Not Resolved]
  - Scleroderma [Not Recovered/Not Resolved]
